FAERS Safety Report 9815387 (Version 1)
Quarter: 2014Q1

REPORT INFORMATION
  Report Type: Spontaneous
  Country: US (occurrence: US)
  Receive Date: 20140114
  Receipt Date: 20140114
  Transmission Date: 20141002
  Serious: Yes (Disabling)
  Sender: FDA-Public Use
  Company Number: US-SA-2014SA003927

PATIENT
  Age: 62 Year
  Sex: Male

DRUGS (7)
  1. LANTUS [Suspect]
     Route: 051
     Dates: start: 1995
  2. LANTUS SOLOSTAR [Suspect]
     Indication: TYPE 2 DIABETES MELLITUS
     Dosage: DOSE:50 UNIT(S)
     Route: 051
     Dates: start: 2007
  3. GLUCOPHAGE [Suspect]
     Route: 065
  4. INFLUENZA VACCINE [Suspect]
     Route: 065
  5. VACCINES [Suspect]
     Route: 065
  6. SOLOSTAR [Concomitant]
     Dates: start: 2007
  7. ALL OTHER THERAPEUTIC PRODUCTS [Concomitant]

REACTIONS (2)
  - Guillain-Barre syndrome [Unknown]
  - Blood glucose increased [Unknown]
